FAERS Safety Report 21816234 (Version 2)
Quarter: 2023Q2

REPORT INFORMATION
  Report Type: Report from Study
  Country: US (occurrence: US)
  Receive Date: 20230104
  Receipt Date: 20230605
  Transmission Date: 20230722
  Serious: No
  Sender: FDA-Public Use
  Company Number: US-ABBVIE-4229663

PATIENT
  Sex: Female

DRUGS (3)
  1. HUMIRA [Suspect]
     Active Substance: ADALIMUMAB
     Indication: Rheumatoid arthritis
     Route: 058
  2. MODERNA COVID-19 VACCINE [Concomitant]
     Active Substance: ELASOMERAN
     Indication: COVID-19 immunisation
     Dosage: FREQUENCY: ONE IN ONCE
     Route: 030
  3. MODERNA COVID-19 VACCINE [Concomitant]
     Active Substance: ELASOMERAN
     Indication: COVID-19 immunisation
     Dosage: FREQUENCY: ONE IN ONCE?BOOSTER DOSE
     Route: 030

REACTIONS (9)
  - Peripheral coldness [Unknown]
  - Rash [Unknown]
  - Pain in extremity [Unknown]
  - Headache [Unknown]
  - Fatigue [Unknown]
  - Dyspepsia [Unknown]
  - Erythema [Unknown]
  - Pruritus [Unknown]
  - Abdominal pain upper [Unknown]
